FAERS Safety Report 8348969-7 (Version None)
Quarter: 2012Q2

REPORT INFORMATION
  Report Type: 
  Country: None (occurrence: None)
  Receive Date: 20120510
  Receipt Date: 20120430
  Transmission Date: 20120825
  Serious: Yes (Other)
  Sender: FDA-Public Use
  Company Number: CA-JNJFOC-20120500898

PATIENT
  Sex: Male
  Weight: 100 kg

DRUGS (7)
  1. LOVAZA [Concomitant]
     Route: 065
  2. ZOPICLONE [Concomitant]
     Route: 065
  3. REMICADE [Suspect]
     Indication: CROHN'S DISEASE
     Route: 042
     Dates: start: 20120203
  4. VITAMIN D W/ CALCIUM [Concomitant]
     Route: 065
  5. IMURAN [Concomitant]
     Route: 065
  6. PREDNISONE [Concomitant]
     Route: 065
  7. IRON [Concomitant]
     Route: 065

REACTIONS (2)
  - HYPOAESTHESIA [None]
  - TACHYCARDIA [None]
